FAERS Safety Report 5481922-X (Version None)
Quarter: 2007Q4

REPORT INFORMATION
  Report Type: 
  Country: None (occurrence: None)
  Receive Date: 20071010
  Receipt Date: 20071002
  Transmission Date: 20080405
  Serious: Yes (Hospitalization, Other)
  Sender: FDA-Public Use
  Company Number: ES-ABBOTT-07P-144-0419135-00

PATIENT
  Age: 36 Year
  Sex: Female

DRUGS (1)
  1. KLACID UNIDIA [Suspect]
     Indication: LUNG INFECTION
     Route: 048
     Dates: start: 20070524, end: 20070524

REACTIONS (5)
  - DISCOMFORT [None]
  - HYPERHIDROSIS [None]
  - INSOMNIA [None]
  - NERVOUSNESS [None]
  - TACHYCARDIA [None]
